FAERS Safety Report 7677767-2 (Version None)
Quarter: 2011Q3

REPORT INFORMATION
  Report Type: 
  Country: None (occurrence: None)
  Receive Date: 20110811
  Receipt Date: 20110801
  Transmission Date: 20111222
  Serious: Yes (Death)
  Sender: FDA-Public Use
  Company Number: AU-JNJFOC-20110801009

PATIENT
  Sex: Male
  Weight: 125 kg

DRUGS (3)
  1. PREDNISOLONE [Concomitant]
  2. IMURAN [Concomitant]
  3. REMICADE [Suspect]
     Indication: SARCOIDOSIS
     Route: 042
     Dates: start: 20110101

REACTIONS (1)
  - VASCULITIS [None]
